FAERS Safety Report 23461348 (Version 5)
Quarter: 2025Q3

REPORT INFORMATION
  Report Type: Report from Study
  Country: CA (occurrence: CA)
  Receive Date: 20240131
  Receipt Date: 20250730
  Transmission Date: 20251021
  Serious: Yes (Other)
  Sender: TAKEDA
  Company Number: CA-TAKEDA-2023TUS064265

PATIENT
  Sex: Female
  Weight: 48.08 kg

DRUGS (2)
  1. VEDOLIZUMAB [Suspect]
     Active Substance: VEDOLIZUMAB
     Indication: Colitis ulcerative
  2. VEDOLIZUMAB [Suspect]
     Active Substance: VEDOLIZUMAB
     Indication: Colitis ulcerative
     Dosage: 108 MILLIGRAM, Q2WEEKS
     Dates: start: 202308

REACTIONS (7)
  - Colitis ulcerative [Unknown]
  - Abdominal discomfort [Unknown]
  - Impaired work ability [Unknown]
  - Social problem [Unknown]
  - Weight fluctuation [Unknown]
  - Defaecation urgency [Unknown]
  - Nasopharyngitis [Unknown]
